FAERS Safety Report 9670937 (Version 2)
Quarter: 2016Q3

REPORT INFORMATION
  Report Type: Report from Study
  Country: KR (occurrence: KR)
  Receive Date: 20131106
  Receipt Date: 20160714
  Transmission Date: 20161109
  Serious: No
  Sender: FDA-Public Use
  Company Number: KR-JNJFOC-20131017674

PATIENT
  Age: 29 Year
  Sex: Female

DRUGS (16)
  1. STELARA [Suspect]
     Active Substance: USTEKINUMAB
     Indication: PSORIASIS
     Route: 058
     Dates: start: 20130214, end: 20130214
  2. SULFASALAZINE DELAYED-RELEASE [Concomitant]
     Active Substance: SULFASALAZINE
     Indication: PSORIASIS
     Route: 065
     Dates: start: 20130214
  3. STELARA [Suspect]
     Active Substance: USTEKINUMAB
     Indication: PSORIASIS
     Route: 058
     Dates: start: 20121115, end: 20121115
  4. AIRTAL [Concomitant]
     Active Substance: ACECLOFENAC
     Indication: ANALGESIC THERAPY
     Route: 065
     Dates: start: 20121122
  5. METOJECT [Concomitant]
     Active Substance: METHOTREXATE SODIUM
     Indication: PSORIASIS
     Route: 058
     Dates: start: 20130404, end: 20130523
  6. MYPOL [Concomitant]
     Indication: ANALGESIC THERAPY
     Route: 065
     Dates: start: 20120913, end: 20120920
  7. MYPOL [Concomitant]
     Indication: ANALGESIC THERAPY
     Route: 065
     Dates: start: 20131120, end: 20131127
  8. STELARA [Suspect]
     Active Substance: USTEKINUMAB
     Indication: PSORIASIS
     Route: 058
     Dates: start: 20121018, end: 20121018
  9. MYPOL [Concomitant]
     Indication: ANALGESIC THERAPY
     Route: 065
     Dates: start: 20130902, end: 20130909
  10. METOJECT [Concomitant]
     Active Substance: METHOTREXATE SODIUM
     Indication: PSORIASIS
     Route: 058
     Dates: start: 20120725, end: 20121108
  11. ELIDEL [Concomitant]
     Active Substance: PIMECROLIMUS
     Indication: PSORIASIS
     Route: 065
     Dates: start: 20121115, end: 20121122
  12. DAIVOBET [Concomitant]
     Active Substance: BETAMETHASONE DIPROPIONATE\CALCIPOTRIENE
     Indication: PSORIASIS
     Route: 065
     Dates: start: 20120718
  13. MYPOL [Concomitant]
     Indication: ANALGESIC THERAPY
     Route: 065
     Dates: start: 20130509, end: 20130516
  14. ULTRACET [Concomitant]
     Active Substance: ACETAMINOPHEN\TRAMADOL HYDROCHLORIDE
     Indication: ANALGESIC THERAPY
     Route: 065
     Dates: start: 20120913, end: 20121115
  15. STELARA [Suspect]
     Active Substance: USTEKINUMAB
     Indication: PSORIASIS
     Route: 058
     Dates: start: 20130814, end: 20131120
  16. STELARA [Suspect]
     Active Substance: USTEKINUMAB
     Indication: PSORIASIS
     Route: 058
     Dates: start: 20130509, end: 20130509

REACTIONS (1)
  - Liver function test abnormal [Recovered/Resolved]

NARRATIVE: CASE EVENT DATE: 20121115
